FAERS Safety Report 9613547 (Version 1)
Quarter: 2013Q4

REPORT INFORMATION
  Report Type: Spontaneous
  Country: US (occurrence: US)
  Receive Date: 20131010
  Receipt Date: 20131010
  Transmission Date: 20140711
  Serious: Yes (Hospitalization, Other)
  Sender: FDA-Public Use
  Company Number: US-VERTEX PHARMACEUTICALS INC-2013-010193

PATIENT
  Sex: Female

DRUGS (1)
  1. INCIVEK [Suspect]
     Indication: HEPATITIS C
     Dosage: UNK
     Route: 048
     Dates: start: 20110916, end: 20120112

REACTIONS (5)
  - Stevens-Johnson syndrome [Unknown]
  - Eye pain [Unknown]
  - Vision blurred [Unknown]
  - Staphylococcus test positive [Unknown]
  - Fatigue [Unknown]
